FAERS Safety Report 19908154 (Version 1)
Quarter: 2021Q4

REPORT INFORMATION
  Report Type: Spontaneous
  Country: US (occurrence: US)
  Receive Date: 20211002
  Receipt Date: 20211002
  Transmission Date: 20220304
  Serious: Yes (Other)
  Sender: FDA-Public Use
  Company Number: US-MSNLABS-2021MSNSPO00429

PATIENT

DRUGS (1)
  1. CAPECITABINE [Suspect]
     Active Substance: CAPECITABINE
     Indication: Pancreatic carcinoma
     Dosage: 2 TABLETS, TWICE A DAY, MONDAY TO FRIDAY
     Route: 048
     Dates: start: 20210320

REACTIONS (1)
  - Drug ineffective [Unknown]
